FAERS Safety Report 7383696-4 (Version None)
Quarter: 2011Q1

REPORT INFORMATION
  Report Type: 
  Country: None (occurrence: None)
  Receive Date: 20110330
  Receipt Date: 20110316
  Transmission Date: 20110831
  Serious: Yes (Other)
  Sender: FDA-Public Use
  Company Number: US-JNJFOC-20110311665

PATIENT
  Age: 86 Year
  Sex: Male
  Weight: 68.49 kg

DRUGS (4)
  1. ZESTRIL [Concomitant]
     Indication: HYPERTENSION
     Route: 048
  2. EXTRA STRENGTH TYLENOL PM [Suspect]
     Indication: INSOMNIA
     Route: 048
  3. ZOCOR [Concomitant]
     Indication: BLOOD CHOLESTEROL INCREASED
     Route: 048
  4. ATENOLOL [Concomitant]
     Indication: HYPERTENSION
     Route: 048

REACTIONS (1)
  - BLOOD PRESSURE INCREASED [None]
